FAERS Safety Report 19984859 (Version 3)
Quarter: 2021Q4

REPORT INFORMATION
  Report Type: Spontaneous
  Country: GB (occurrence: None)
  Receive Date: 20211021
  Receipt Date: 20211108
  Transmission Date: 20220303
  Serious: Yes (Other)
  Sender: FDA-Public Use
  Company Number: GB-MERCK HEALTHCARE KGAA-9272715

PATIENT
  Age: 52 Year
  Sex: Male
  Weight: 109 kg

DRUGS (5)
  1. AVELUMAB [Suspect]
     Active Substance: AVELUMAB
     Indication: Renal cancer recurrent
     Route: 042
     Dates: start: 202005
  2. AXITINIB [Suspect]
     Active Substance: AXITINIB
     Indication: Renal cancer recurrent
     Route: 048
     Dates: start: 202005
  3. AXITINIB [Suspect]
     Active Substance: AXITINIB
     Dosage: 5 MG MORNING AND 3 MG EVENING
     Route: 048
  4. AXITINIB [Suspect]
     Active Substance: AXITINIB
     Dosage: 3 MG 2 TIMES/DAY
     Route: 048
  5. HYDROCORTISONE [Concomitant]
     Active Substance: HYDROCORTISONE
     Indication: Premedication

REACTIONS (12)
  - Anal abscess [Unknown]
  - Mouth ulceration [Recovered/Resolved]
  - Oral pain [Unknown]
  - Pilonidal cyst [Unknown]
  - Skin reaction [Unknown]
  - Dry skin [Unknown]
  - Neoplasm progression [Recovered/Resolved]
  - Decreased appetite [Unknown]
  - Fatigue [Unknown]
  - Infusion related reaction [Recovered/Resolved]
  - Hypertension [Recovered/Resolved]
  - Weight decreased [Recovered/Resolved]
